FAERS Safety Report 4435109-X (Version None)
Quarter: 2004Q3

REPORT INFORMATION
  Report Type: 
  Country: None (occurrence: None)
  Receive Date: 20040826
  Receipt Date: 20040826
  Transmission Date: 20050211
  Serious: Yes (Life-Threatening, Hospitalization)
  Sender: FDA-Public Use
  Company Number: None

PATIENT
  Sex: Female
  Weight: 100.2449 kg

DRUGS (1)
  1. SEASONALE [Suspect]
     Indication: MENSTRUATION IRREGULAR
     Dosage: AS DIRECT
     Dates: start: 20040717, end: 20040814

REACTIONS (1)
  - PULMONARY EMBOLISM [None]
